FAERS Safety Report 5395730-1 (Version None)
Quarter: 2007Q3

REPORT INFORMATION
  Report Type: 
  Country: None (occurrence: None)
  Receive Date: 20070724
  Receipt Date: 20070720
  Transmission Date: 20080115
  Serious: Yes (Hospitalization)
  Sender: FDA-Public Use
  Company Number: FR-MERCK-0707FRA00039

PATIENT
  Age: 56 Year
  Sex: Female

DRUGS (14)
  1. EMEND [Suspect]
     Indication: PROPHYLAXIS OF NAUSEA AND VOMITING
     Route: 048
     Dates: start: 20070425, end: 20070427
  2. EMEND [Suspect]
     Route: 048
     Dates: start: 20070521, end: 20070523
  3. EMEND [Suspect]
     Route: 048
     Dates: start: 20070611, end: 20070613
  4. ETOPOSIDE [Suspect]
     Indication: LUNG NEOPLASM MALIGNANT
     Route: 048
     Dates: start: 20070425, end: 20070429
  5. ETOPOSIDE [Suspect]
     Route: 048
     Dates: start: 20070521, end: 20070525
  6. ETOPOSIDE [Suspect]
     Route: 048
     Dates: start: 20070611, end: 20070615
  7. CISPLATIN [Suspect]
     Indication: LUNG NEOPLASM MALIGNANT
     Route: 042
     Dates: start: 20070425, end: 20070429
  8. CISPLATIN [Suspect]
     Route: 042
     Dates: start: 20070521, end: 20070525
  9. CISPLATIN [Suspect]
     Route: 042
     Dates: start: 20070611, end: 20070615
  10. CLOZAPINE [Suspect]
     Indication: SCHIZOPHRENIA
     Route: 048
     Dates: start: 20011203
  11. ACEPROMAZINE AND ACEPROMETAZINE AND CLORAZEPATE DIPOTASSIUM [Concomitant]
     Route: 048
  12. ANETHOLE TRITHIONE [Concomitant]
     Route: 048
  13. PRAZEPAM [Concomitant]
     Route: 048
  14. TROPATEPINE [Concomitant]
     Route: 048

REACTIONS (3)
  - DRUG INTERACTION [None]
  - LEUKOPENIA [None]
  - NEUTROPENIA [None]
